FAERS Safety Report 19098603 (Version 1)
Quarter: 2021Q2

REPORT INFORMATION
  Report Type: Spontaneous
  Country: US (occurrence: US)
  Receive Date: 20210406
  Receipt Date: 20210406
  Transmission Date: 20210717
  Serious: Yes (Hospitalization)
  Sender: FDA-Public Use
  Company Number: US-TAKEDA-2021TUS020308

PATIENT
  Age: 35 Year
  Sex: Female
  Weight: 102 kg

DRUGS (8)
  1. PROTONIX [OMEPRAZOLE] [Concomitant]
     Active Substance: OMEPRAZOLE
  2. LYRICA [Concomitant]
     Active Substance: PREGABALIN
  3. TRAZODONE [Concomitant]
     Active Substance: TRAZODONE HYDROCHLORIDE
  4. HYQVIA [Suspect]
     Active Substance: HUMAN IMMUNOGLOBULIN G\HYALURONIDASE RECOMBINANT HUMAN
     Indication: PRODUCT USED FOR UNKNOWN INDICATION
     Dosage: 37.5 GRAM, EVERY 21 DAYS
     Route: 058
  5. VITAMIN D [VITAMIN D NOS] [Concomitant]
     Active Substance: VITAMIN D NOS
  6. CLONAZEPAM. [Concomitant]
     Active Substance: CLONAZEPAM
  7. FLUOXETINE [Concomitant]
     Active Substance: FLUOXETINE HYDROCHLORIDE
  8. LEVOTHYROXINE. [Concomitant]
     Active Substance: LEVOTHYROXINE

REACTIONS (2)
  - Hospitalisation [Unknown]
  - Therapy interrupted [Unknown]

NARRATIVE: CASE EVENT DATE: 20200508
